FAERS Safety Report 12079038 (Version 3)
Quarter: 2016Q2

REPORT INFORMATION
  Report Type: Spontaneous
  Country: US (occurrence: US)
  Receive Date: 20160216
  Receipt Date: 20160512
  Transmission Date: 20160815
  Serious: No
  Sender: FDA-Public Use
  Company Number: US-PFIZER INC-2016057302

PATIENT
  Age: 69 Year
  Sex: Male
  Weight: 74 kg

DRUGS (5)
  1. ANDROGEL [Concomitant]
     Active Substance: TESTOSTERONE
     Indication: THYROID DISORDER
     Dosage: 1.62 (UNKNOWN UNITS), 2 PUMPS AND RUB ON SHOULDERS
     Route: 061
  2. PREDNISONE. [Concomitant]
     Active Substance: PREDNISONE
     Dosage: 5 MG IN THE MORNING AND 2.5 MG IN THE EVENING
  3. GENOTROPIN MQ [Suspect]
     Active Substance: SOMATROPIN
     Indication: MUSCLE BUILDING THERAPY
  4. LEVOTHYROXINE. [Concomitant]
     Active Substance: LEVOTHYROXINE
     Indication: THYROID DISORDER
     Dosage: 0.1 MG, 1X/DAY
  5. GENOTROPIN MQ [Suspect]
     Active Substance: SOMATROPIN
     Indication: HORMONE REPLACEMENT THERAPY
     Dosage: 0.2 MG, 1X/DAY (INJECTION ON TOP OF LEGS)
     Dates: start: 20160110

REACTIONS (3)
  - Peripheral swelling [Recovering/Resolving]
  - Joint swelling [Recovering/Resolving]
  - Oedema [Unknown]

NARRATIVE: CASE EVENT DATE: 20160125
